FAERS Safety Report 12451193 (Version 1)
Quarter: 2016Q2

REPORT INFORMATION
  Report Type: Spontaneous
  Country: US (occurrence: None)
  Receive Date: 20160608
  Receipt Date: 20160608
  Transmission Date: 20160815
  Serious: Yes (Disabling)
  Sender: FDA-Public Use
  Company Number: None

PATIENT
  Age: 74 Year
  Sex: Female
  Weight: 79.38 kg

DRUGS (3)
  1. HUMIRA [Suspect]
     Active Substance: ADALIMUMAB
  2. METHOTREXATE [Suspect]
     Active Substance: METHOTREXATE
     Indication: ARTHRITIS
     Route: 048
     Dates: start: 201409, end: 2014
  3. ENBREL [Suspect]
     Active Substance: ETANERCEPT

REACTIONS (5)
  - Cerebrovascular accident [None]
  - Crying [None]
  - Cervix carcinoma [None]
  - Fatigue [None]
  - Hepatic cirrhosis [None]

NARRATIVE: CASE EVENT DATE: 201404
